FAERS Safety Report 6756279-4 (Version None)
Quarter: 2010Q2

REPORT INFORMATION
  Report Type: 
  Country: None (occurrence: None)
  Receive Date: 20100604
  Receipt Date: 20100526
  Transmission Date: 20101027
  Serious: Yes (Death, Other)
  Sender: FDA-Public Use
  Company Number: JP-ROCHE-699506

PATIENT
  Sex: Male
  Weight: 75 kg

DRUGS (10)
  1. AVASTIN [Suspect]
     Indication: LUNG ADENOCARCINOMA
     Dosage: DOSE REPORTED: 1158 MG
     Route: 041
     Dates: start: 20091124, end: 20100101
  2. CARBOPLATIN [Suspect]
     Indication: LUNG ADENOCARCINOMA
     Dosage: DOSAGE UNCERTAIN
     Route: 041
  3. PACLITAXEL [Suspect]
     Indication: LUNG ADENOCARCINOMA
     Dosage: DOSAGE UNCERTAIN
     Route: 041
  4. MOBIC [Suspect]
     Indication: PROPHYLAXIS
     Route: 048
     Dates: start: 20091124, end: 20100118
  5. LOXONIN [Suspect]
     Indication: DRUG USE FOR UNKNOWN INDICATION
     Dosage: SINGLE USE
     Route: 048
     Dates: start: 20091127
  6. ADONA [Concomitant]
     Route: 048
     Dates: start: 20091112, end: 20091217
  7. GOSHAJINKIGAN [Concomitant]
     Dosage: FORM: GRANULATED POWDER
     Route: 048
     Dates: start: 20091124, end: 20100113
  8. ALLELOCK [Concomitant]
     Route: 048
     Dates: start: 20091127, end: 20100118
  9. MYSLEE [Concomitant]
     Route: 048
     Dates: start: 20091127, end: 20100118
  10. CYTOTEC [Concomitant]
     Dosage: SINGLE USE
     Route: 048
     Dates: start: 20091127

REACTIONS (3)
  - DISEASE PROGRESSION [None]
  - NON-SMALL CELL LUNG CANCER STAGE IIIB [None]
  - TUBULOINTERSTITIAL NEPHRITIS [None]
